FAERS Safety Report 9502031 (Version 1)
Quarter: 2013Q3

REPORT INFORMATION
  Report Type: Spontaneous
  Country: US (occurrence: US)
  Receive Date: 20130905
  Receipt Date: 20130905
  Transmission Date: 20140515
  Serious: Yes (Other)
  Sender: FDA-Public Use
  Company Number: US-COVIDIEN/TYCO HEALTHCARE/MALLINCKRODT-T201304253

PATIENT
  Age: 11 Year
  Sex: Male

DRUGS (2)
  1. METHYLPHENIDATE HYDROCHLORIDE EXTENDED RELEASE TABLETS [Suspect]
     Indication: PRODUCT USED FOR UNKNOWN INDICATION
     Dosage: UNK
  2. CONCERTA [Concomitant]
     Dosage: UNK
     Dates: start: 2009

REACTIONS (7)
  - Social avoidant behaviour [Unknown]
  - Aggression [Unknown]
  - Feeling abnormal [Unknown]
  - Anger [Unknown]
  - Headache [Unknown]
  - Fatigue [Unknown]
  - Drug effect decreased [Unknown]
